FAERS Safety Report 9095898 (Version 1)
Quarter: 2013Q1

REPORT INFORMATION
  Report Type: Spontaneous
  Country: US (occurrence: US)
  Receive Date: 20130219
  Receipt Date: 20130219
  Transmission Date: 20140127
  Serious: No
  Sender: FDA-Public Use
  Company Number: US-009507513-1210USA004205

PATIENT
  Sex: Male

DRUGS (2)
  1. CLARITIN [Suspect]
     Indication: LACRIMATION INCREASED
     Dosage: 10 MG, UNK
     Route: 048
     Dates: start: 20120201
  2. CLARITIN [Suspect]
     Indication: RHINORRHOEA
     Dosage: 10 MG, UNK
     Dates: start: 20120201

REACTIONS (2)
  - Drug ineffective [Unknown]
  - Overdose [Unknown]
